FAERS Safety Report 6634298-6 (Version None)
Quarter: 2010Q1

REPORT INFORMATION
  Report Type: 
  Country: None (occurrence: None)
  Receive Date: 20100315
  Receipt Date: 20100212
  Transmission Date: 20100710
  Serious: No
  Sender: FDA-Public Use
  Company Number: US-BAYER-201011920BCC

PATIENT
  Age: 28 Year
  Sex: Female
  Weight: 68 kg

DRUGS (2)
  1. ALEVE [Suspect]
     Indication: HEADACHE
     Dosage: TOTAL DAILY DOSE: 220 MG  UNIT DOSE: 220 MG
     Route: 048
     Dates: start: 20100212
  2. BIRTH CONTROL PILLS [Concomitant]
     Route: 065

REACTIONS (7)
  - BURNING SENSATION [None]
  - EAR PAIN [None]
  - FACIAL PAIN [None]
  - NAUSEA [None]
  - PAIN IN JAW [None]
  - RHINORRHOEA [None]
  - UPPER AIRWAY OBSTRUCTION [None]
